FAERS Safety Report 9015288 (Version 1)
Quarter: 2013Q1

REPORT INFORMATION
  Report Type: Spontaneous
  Country: US (occurrence: None)
  Receive Date: 20130109
  Receipt Date: 20130109
  Transmission Date: 20140127
  Serious: Yes (Other)
  Sender: FDA-Public Use
  Company Number: None

PATIENT
  Sex: Female
  Weight: 61.24 kg

DRUGS (1)
  1. SULFAMETHOXAZOLE AND TRIMETHOPRIM DS [Suspect]
     Indication: URINARY TRACT INFECTION
     Dosage: 800-160MG BID ORAL 047
     Route: 048
     Dates: start: 20121213, end: 20121215

REACTIONS (3)
  - Rash [None]
  - Pruritus [None]
  - Drug ineffective [None]
